FAERS Safety Report 9961411 (Version 2)
Quarter: 2014Q2

REPORT INFORMATION
  Report Type: Spontaneous
  Country: US (occurrence: US)
  Receive Date: 20140305
  Receipt Date: 20140624
  Transmission Date: 20141212
  Serious: Yes (Other)
  Sender: FDA-Public Use
  Company Number: US-LUNDBECK-DKLU1097965

PATIENT
  Sex: Female
  Weight: 56 kg

DRUGS (9)
  1. ONFI [Suspect]
     Indication: CONVULSION
     Dates: start: 20120712
  2. ONFI [Suspect]
     Indication: EPILEPSY
     Dates: start: 20130401
  3. ONFI [Suspect]
     Indication: LENNOX-GASTAUT SYNDROME
     Dates: start: 20130911
  4. ONFI [Suspect]
     Dates: start: 20140203
  5. TRILEPTAL [Concomitant]
     Indication: PRODUCT USED FOR UNKNOWN INDICATION
     Route: 048
  6. TRILEPTAL [Concomitant]
     Route: 048
  7. TRILEPTAL [Concomitant]
     Route: 048
     Dates: start: 20120820
  8. VALPROIC ACID [Concomitant]
     Indication: PRODUCT USED FOR UNKNOWN INDICATION
  9. FERROUS SULFATE/C/FOLIC ACID [Concomitant]
     Indication: ANAEMIA
     Route: 048

REACTIONS (1)
  - Convulsion [Not Recovered/Not Resolved]
